FAERS Safety Report 18807322 (Version 1)
Quarter: 2021Q1

REPORT INFORMATION
  Report Type: Spontaneous
  Country: US (occurrence: US)
  Receive Date: 20210129
  Receipt Date: 20210129
  Transmission Date: 20210419
  Serious: Yes (Other)
  Sender: FDA-Public Use
  Company Number: US-BAYER-2021-034672

PATIENT
  Age: 46 Year
  Sex: Female

DRUGS (2)
  1. MIRENA [Suspect]
     Active Substance: LEVONORGESTREL
     Indication: UTERINE CYST
  2. MIRENA [Suspect]
     Active Substance: LEVONORGESTREL
     Indication: MENOPAUSE
     Dosage: 20 ?G PER DAY, CONTINUOUSLY
     Route: 015

REACTIONS (10)
  - Breast pain [Not Recovered/Not Resolved]
  - Genital haemorrhage [Not Recovered/Not Resolved]
  - Dizziness [Not Recovered/Not Resolved]
  - Urinary tract infection [Not Recovered/Not Resolved]
  - Device use issue [None]
  - Bacterial vaginosis [Not Recovered/Not Resolved]
  - Pain [Not Recovered/Not Resolved]
  - Off label use of device [None]
  - Vaginal haemorrhage [Not Recovered/Not Resolved]
  - Hypoaesthesia [Not Recovered/Not Resolved]
